FAERS Safety Report 12056742 (Version 1)
Quarter: 2016Q1

REPORT INFORMATION
  Report Type: Spontaneous
  Country: US (occurrence: US)
  Receive Date: 20160209
  Receipt Date: 20160209
  Transmission Date: 20160526
  Serious: Yes (Hospitalization)
  Sender: FDA-Public Use
  Company Number: US-TEVA-632255USA

PATIENT
  Age: 71 Year
  Sex: Male

DRUGS (6)
  1. EPTIFIBATIDE. [Suspect]
     Active Substance: EPTIFIBATIDE
     Indication: CORONARY ARTERY DISEASE
     Dosage: 2 MICROG/KG/MIN INFUSION
     Route: 050
  2. METOPROLOL SUCCINATE. [Concomitant]
     Active Substance: METOPROLOL SUCCINATE
     Indication: CORONARY ARTERY DISEASE
     Route: 065
  3. HEPARIN [Concomitant]
     Active Substance: HEPARIN SODIUM
     Indication: ACUTE MYOCARDIAL INFARCTION
     Route: 050
  4. ROSUVASTATIN [Concomitant]
     Active Substance: ROSUVASTATIN
     Indication: CORONARY ARTERY DISEASE
     Route: 065
  5. ASPIRIN. [Concomitant]
     Active Substance: ASPIRIN
     Indication: CORONARY ARTERY DISEASE
     Route: 065
  6. EPTIFIBATIDE. [Suspect]
     Active Substance: EPTIFIBATIDE
     Indication: CORONARY ARTERY DISEASE
     Dosage: 180 MICROG/KG, FOLLOWED BY INFUSION OF 2 MICROG/KG/MIN
     Route: 050

REACTIONS (3)
  - Chills [Recovered/Resolved]
  - Thrombocytopenia [Recovered/Resolved]
  - Hypoxia [Recovered/Resolved]
